FAERS Safety Report 11836182 (Version 1)
Quarter: 2015Q4

REPORT INFORMATION
  Report Type: Spontaneous
  Country: BR (occurrence: BR)
  Receive Date: 20151215
  Receipt Date: 20151215
  Transmission Date: 20160305
  Serious: Yes (Hospitalization, Other)
  Sender: FDA-Public Use
  Company Number: BR-DSJP-DSU-2015-138589

PATIENT

DRUGS (3)
  1. OLMETEC 20MG [Suspect]
     Active Substance: OLMESARTAN MEDOXOMIL
     Dosage: 20 MG, BID
     Route: 048
     Dates: start: 2015
  2. OLMETEC 20MG [Suspect]
     Active Substance: OLMESARTAN MEDOXOMIL
     Indication: HYPERTENSION
     Dosage: 20 MG, QD
     Route: 048
     Dates: start: 201502, end: 20151207
  3. CARDIZEM [Concomitant]
     Active Substance: DILTIAZEM HYDROCHLORIDE
     Indication: HYPERTENSION
     Dosage: 1 TABLET , BID (ONE TABLET IN THE MORNING AND ANOTHER ONE AT NIGHT)
     Dates: start: 201502

REACTIONS (8)
  - Blood cholesterol increased [Unknown]
  - Pulmonary embolism [Recovered/Resolved with Sequelae]
  - Drug hypersensitivity [Unknown]
  - Blood triglycerides increased [Unknown]
  - Joint arthroplasty [Unknown]
  - Pain [Unknown]
  - Respiratory disorder [Unknown]
  - Drug ineffective [Unknown]

NARRATIVE: CASE EVENT DATE: 2015
